FAERS Safety Report 10476886 (Version 4)
Quarter: 2015Q2

REPORT INFORMATION
  Report Type: Spontaneous
  Country: GB (occurrence: GB)
  Receive Date: 20140926
  Receipt Date: 20150626
  Transmission Date: 20150821
  Serious: Yes (Other)
  Sender: FDA-Public Use
  Company Number: GB-UCBSA-2014012695

PATIENT
  Age: 67 Year
  Sex: Female

DRUGS (1)
  1. CIMZIA [Suspect]
     Active Substance: CERTOLIZUMAB PEGOL
     Indication: RHEUMATOID ARTHRITIS
     Dosage: 200 MG, EV 2 WEEKS(QOW)
     Route: 058
     Dates: start: 20130913, end: 201409

REACTIONS (4)
  - Drug dose omission [Unknown]
  - Norepinephrine increased [Not Recovered/Not Resolved]
  - Blood test abnormal [Unknown]
  - Phaeochromocytoma [Unknown]

NARRATIVE: CASE EVENT DATE: 201409
